FAERS Safety Report 7170978-4 (Version None)
Quarter: 2010Q4

REPORT INFORMATION
  Report Type: 
  Country: None (occurrence: None)
  Receive Date: 20101217
  Receipt Date: 20101213
  Transmission Date: 20110411
  Serious: Yes (Disabling)
  Sender: FDA-Public Use
  Company Number: US-MERCK-1011USA00345

PATIENT
  Age: 77 Year
  Sex: Female

DRUGS (9)
  1. ZOCOR [Suspect]
     Indication: BLOOD CHOLESTEROL
     Route: 048
     Dates: start: 20020101
  2. SIMVASTATIN [Suspect]
     Indication: BLOOD CHOLESTEROL
     Route: 048
     Dates: end: 20101001
  3. COZAAR [Concomitant]
     Route: 048
  4. AMLODIPINE [Concomitant]
     Route: 065
  5. LEVOTHYROXINE SODIUM [Concomitant]
     Route: 065
  6. KLOR-CON [Concomitant]
     Route: 065
  7. SPIRONOLACTONE [Concomitant]
     Route: 065
  8. TOPIRAMATE [Concomitant]
     Route: 065
  9. FOSAMAX [Concomitant]
     Route: 048

REACTIONS (1)
  - ANOSMIA [None]
